FAERS Safety Report 6581045-2 (Version None)
Quarter: 2010Q1

REPORT INFORMATION
  Report Type: 
  Country: None (occurrence: None)
  Receive Date: 20100215
  Receipt Date: 20100201
  Transmission Date: 20100710
  Serious: Yes (Hospitalization, Other)
  Sender: FDA-Public Use
  Company Number: PHHY2010JP02369

PATIENT
  Sex: Female
  Weight: 44 kg

DRUGS (8)
  1. ZOMETA [Suspect]
     Indication: NEOPLASM
     Dosage: UNK
     Route: 042
     Dates: start: 20090914
  2. ZOMETA [Suspect]
     Indication: METASTASES TO BONE
     Dosage: UNK
     Route: 042
     Dates: start: 20091007
  3. ZOMETA [Suspect]
     Dosage: UNK
     Route: 042
     Dates: start: 20091028
  4. ZOMETA [Suspect]
     Dosage: UNK
     Route: 042
     Dates: start: 20091210
  5. RELIFEN [Concomitant]
     Indication: PAIN
     Dosage: 1600 MG, UNK
     Route: 048
     Dates: start: 20090914
  6. OXYCONTIN [Concomitant]
     Indication: PAIN
     Dosage: 20 MG, UNK
     Route: 048
     Dates: start: 20090924
  7. GABAPENTIN [Concomitant]
     Indication: PAIN
     Dosage: 600 MG, UNK
     Route: 048
     Dates: start: 20090924
  8. OXINORM [Concomitant]
     Indication: PAIN
     Dosage: 5 MG, UNK
     Route: 048
     Dates: start: 20090924

REACTIONS (8)
  - ALBUMIN GLOBULIN RATIO DECREASED [None]
  - BLOOD ALBUMIN DECREASED [None]
  - BLOOD CREATININE INCREASED [None]
  - CONDITION AGGRAVATED [None]
  - HYDRONEPHROSIS [None]
  - PROTEIN TOTAL DECREASED [None]
  - RENAL IMPAIRMENT [None]
  - UTERINE CANCER [None]
